FAERS Safety Report 5414136-X (Version None)
Quarter: 2007Q3

REPORT INFORMATION
  Report Type: 
  Country: None (occurrence: None)
  Receive Date: 20070814
  Receipt Date: 20070621
  Transmission Date: 20080115
  Serious: Yes (Hospitalization, Other)
  Sender: FDA-Public Use
  Company Number: US-PFIZER INC-2007027698

PATIENT
  Sex: Female

DRUGS (4)
  1. ADRIAMYCIN PFS [Suspect]
     Indication: NON-HODGKIN'S LYMPHOMA
     Dates: start: 19950101, end: 19950101
  2. PREDNISONE TAB [Suspect]
  3. VINCRISTINE [Suspect]
     Indication: NON-HODGKIN'S LYMPHOMA
     Dates: start: 19950101, end: 19950101
  4. CYTOXAN [Suspect]
     Indication: NON-HODGKIN'S LYMPHOMA
     Dates: start: 19950101, end: 19950101

REACTIONS (3)
  - CARDIAC ARREST [None]
  - CARDIAC DISORDER [None]
  - NON-HODGKIN'S LYMPHOMA RECURRENT [None]
